FAERS Safety Report 6671481-8 (Version None)
Quarter: 2010Q2

REPORT INFORMATION
  Report Type: 
  Country: None (occurrence: None)
  Receive Date: 20100407
  Receipt Date: 20100401
  Transmission Date: 20101027
  Serious: Yes (Life-Threatening, Hospitalization)
  Sender: FDA-Public Use
  Company Number: JP-MERCK-1003USA04434

PATIENT
  Age: 85 Year
  Sex: Female

DRUGS (11)
  1. JANUVIA [Suspect]
     Indication: DIABETES MELLITUS
     Route: 048
     Dates: start: 20100312, end: 20100319
  2. EUGLUCON [Suspect]
     Indication: DIABETES MELLITUS
     Route: 048
     Dates: start: 20100312, end: 20100319
  3. EUGLUCON [Suspect]
     Route: 048
     Dates: end: 20100311
  4. DIBETOS [Suspect]
     Indication: DIABETES MELLITUS
     Route: 048
     Dates: end: 20100319
  5. HYZAAR [Concomitant]
     Indication: HYPERTENSION
     Dosage: DOSAGE IS UNCERTAIN DURING A DAY
     Route: 048
     Dates: start: 20090806, end: 20100319
  6. LIVALO [Concomitant]
     Indication: HYPERCHOLESTEROLAEMIA
     Route: 048
     Dates: start: 20090924, end: 20100319
  7. ASPIRIN [Concomitant]
     Indication: ARTERIOSCLEROSIS
     Route: 048
     Dates: end: 20100319
  8. ADALAT CC [Concomitant]
     Indication: HYPERTENSION
     Route: 048
     Dates: end: 20100319
  9. FOSAMAX [Concomitant]
     Indication: OSTEOPOROSIS
     Route: 048
     Dates: end: 20100319
  10. OMEPRAL [Concomitant]
     Indication: REFLUX OESOPHAGITIS
     Route: 048
     Dates: end: 20100319
  11. SERMION [Concomitant]
     Indication: CEREBRAL ARTERIOSCLEROSIS
     Route: 048
     Dates: end: 20100319

REACTIONS (5)
  - BLOOD CREATINE PHOSPHOKINASE INCREASED [None]
  - BLOOD LACTATE DEHYDROGENASE INCREASED [None]
  - CIRCULATORY COLLAPSE [None]
  - GLYCOSYLATED HAEMOGLOBIN INCREASED [None]
  - HYPOGLYCAEMIA [None]
